FAERS Safety Report 10313781 (Version 4)
Quarter: 2015Q2

REPORT INFORMATION
  Report Type: Spontaneous
  Country: US (occurrence: US)
  Receive Date: 20140718
  Receipt Date: 20150423
  Transmission Date: 20150821
  Serious: Yes (Disabling)
  Sender: FDA-Public Use
  Company Number: US-009507513-1407USA007744

PATIENT
  Sex: Male

DRUGS (2)
  1. FINASTERIDE. [Suspect]
     Active Substance: FINASTERIDE
     Indication: ALOPECIA
     Dosage: UNK
     Route: 048
     Dates: end: 2009
  2. PROPECIA [Suspect]
     Active Substance: FINASTERIDE
     Indication: ALOPECIA
     Dosage: 1 MG, QD
     Route: 048
     Dates: start: 2007, end: 2009

REACTIONS (18)
  - Ejaculation disorder [Unknown]
  - Loss of libido [Not Recovered/Not Resolved]
  - Anxiety [Not Recovered/Not Resolved]
  - Penile size reduced [Unknown]
  - Testicular pain [Unknown]
  - Penis injury [Not Recovered/Not Resolved]
  - Brain injury [Not Recovered/Not Resolved]
  - Depression [Not Recovered/Not Resolved]
  - Ear pain [Recovered/Resolved]
  - Cognitive disorder [Not Recovered/Not Resolved]
  - Hormone level abnormal [Not Recovered/Not Resolved]
  - Testicular atrophy [Unknown]
  - Semen volume decreased [Unknown]
  - Sexual dysfunction [Not Recovered/Not Resolved]
  - Painful ejaculation [Unknown]
  - Groin pain [Unknown]
  - Erectile dysfunction [Not Recovered/Not Resolved]
  - Osteoarthritis [Not Recovered/Not Resolved]

NARRATIVE: CASE EVENT DATE: 2007
